FAERS Safety Report 4836768-X (Version None)
Quarter: 2005Q4

REPORT INFORMATION
  Report Type: 
  Country: None (occurrence: None)
  Receive Date: 20051123
  Receipt Date: 20051116
  Transmission Date: 20060501
  Serious: Yes (Hospitalization, Disabling)
  Sender: FDA-Public Use
  Company Number: US-MERCK-0511USA03161

PATIENT
  Sex: Male

DRUGS (2)
  1. VIOXX [Suspect]
     Indication: ARTHRITIS
     Route: 048
     Dates: start: 19990101
  2. VIOXX [Suspect]
     Indication: BACK PAIN
     Route: 048
     Dates: start: 19990101

REACTIONS (7)
  - ARTERIAL BYPASS OPERATION [None]
  - ASTHENIA [None]
  - CHEST PAIN [None]
  - IMPAIRED HEALING [None]
  - PAIN IN EXTREMITY [None]
  - SKIN ULCER [None]
  - THROMBOSIS [None]
